FAERS Safety Report 11082372 (Version 1)
Quarter: 2015Q2

REPORT INFORMATION
  Report Type: Spontaneous
  Country: NL (occurrence: NL)
  Receive Date: 20150501
  Receipt Date: 20150501
  Transmission Date: 20150821
  Serious: Yes (Other)
  Sender: FDA-Public Use
  Company Number: NL-TEVA-557364ISR

PATIENT
  Age: 57 Year
  Sex: Female
  Weight: 72 kg

DRUGS (3)
  1. TAMOXIFEN TABLET 20MG [Suspect]
     Active Substance: TAMOXIFEN
     Indication: BREAST CANCER
     Dosage: 20 MILLIGRAM DAILY;
     Route: 048
     Dates: start: 201212
  2. FLURAZEPAM CAPSULE 15MG [Concomitant]
     Dosage: 30 MILLIGRAM DAILY;
     Route: 048
     Dates: start: 2013, end: 20140912
  3. DIAZEPAM TABLET 2MG [Concomitant]
     Dosage: TAPERING-OFF SCHEME STARTED IN SEPTEMBER 2014 FROM 10 MG TO 0 MG
     Route: 048
     Dates: start: 2014, end: 20141231

REACTIONS (2)
  - Vision blurred [Not Recovered/Not Resolved]
  - Retinal detachment [Not Recovered/Not Resolved]

NARRATIVE: CASE EVENT DATE: 201407
